FAERS Safety Report 9302711 (Version 1)
Quarter: 2013Q2

REPORT INFORMATION
  Report Type: Report from Study
  Country: CA (occurrence: CA)
  Receive Date: 20130522
  Receipt Date: 20130522
  Transmission Date: 20140414
  Serious: Yes (Hospitalization)
  Sender: FDA-Public Use
  Company Number: PHHO2011CA07067

PATIENT
  Age: 71 Year
  Sex: Male
  Weight: 95.6 kg

DRUGS (9)
  1. BLINDED ALISKIREN [Suspect]
     Indication: CARDIAC FAILURE
     Dosage: CODE NOT BROKEN
     Route: 048
     Dates: start: 20110223, end: 20110407
  2. BLINDED ENALAPRIL [Suspect]
     Indication: CARDIAC FAILURE
     Dosage: CODE NOT BROKEN
     Route: 048
     Dates: start: 20110223, end: 20110407
  3. BLINDED NO TREATMENT RECEIVED [Suspect]
     Indication: CARDIAC FAILURE
     Dosage: CODE NOT BROKEN
     Route: 048
     Dates: start: 20110223, end: 20110407
  4. CARVEDILOL [Concomitant]
     Indication: CARDIAC FAILURE CHRONIC
     Dosage: 6.25 MG, BID
     Route: 048
     Dates: start: 20120226, end: 20130125
  5. FUROSEMIDE [Concomitant]
     Indication: CARDIAC FAILURE CHRONIC
     Dosage: AM 80 MG, QD
     Dates: start: 20120616, end: 20130125
  6. FUROSEMIDE [Concomitant]
     Dosage: PM 40 MG, QD
     Dates: start: 20120616, end: 20130124
  7. FOSINOPRIL [Concomitant]
     Indication: CARDIAC FAILURE CHRONIC
     Dosage: 10 MG, QD
     Route: 048
     Dates: start: 20120321, end: 20130125
  8. SPIRONOLACTONE [Concomitant]
     Indication: CARDIAC FAILURE CHRONIC
     Dosage: 12.5 MG, QD
     Route: 048
     Dates: start: 20120613, end: 20130125
  9. DIGOXIN [Concomitant]
     Dosage: 0.062 MG, QD
     Route: 048
     Dates: start: 20060629, end: 20130125

REACTIONS (2)
  - Pneumonia [Unknown]
  - Cardiac failure [Recovering/Resolving]
